FAERS Safety Report 18839190 (Version 1)
Quarter: 2021Q1

REPORT INFORMATION
  Report Type: Spontaneous
  Country: US (occurrence: US)
  Receive Date: 20210203
  Receipt Date: 20210203
  Transmission Date: 20210419
  Serious: No
  Sender: FDA-Public Use
  Company Number: US-PFIZER INC-2020475121

PATIENT
  Age: 72 Year
  Sex: Female

DRUGS (2)
  1. BRAFTOVI [Suspect]
     Active Substance: ENCORAFENIB
     Indication: MALIGNANT PERITONEAL NEOPLASM
     Dosage: 450 MG, DAILY
  2. MEKTOVI [Suspect]
     Active Substance: BINIMETINIB
     Indication: MALIGNANT PERITONEAL NEOPLASM
     Dosage: 45 MG, 2X/DAY

REACTIONS (2)
  - Neoplasm progression [Unknown]
  - Off label use [Unknown]
